FAERS Safety Report 14698968 (Version 4)
Quarter: 2018Q3

REPORT INFORMATION
  Report Type: Report from Study
  Country: MX (occurrence: MX)
  Receive Date: 20180330
  Receipt Date: 20180702
  Transmission Date: 20181010
  Serious: Yes (Other)
  Sender: FDA-Public Use
  Company Number: PHHY2017MX010146

PATIENT
  Age: 80 Year
  Sex: Female
  Weight: 90 kg

DRUGS (13)
  1. ASPIRIN. [Concomitant]
     Active Substance: ASPIRIN
     Indication: ANTICOAGULANT THERAPY
  2. PROPANOLOL [Concomitant]
     Active Substance: PROPRANOLOL HYDROCHLORIDE
     Indication: HYPERTENSION
     Dosage: 1 DF, QD (7 YEARS AGO)
     Route: 048
  3. EXEMESTANO [Concomitant]
     Active Substance: EXEMESTANE
     Indication: BREAST CANCER
     Dosage: 1 DF, QD (10 YEARS AGO)
     Route: 048
  4. ASPIRIN PROTECT [Concomitant]
     Active Substance: ASPIRIN
     Indication: PRODUCT USED FOR UNKNOWN INDICATION
     Route: 065
  5. EUTIROX [Concomitant]
     Active Substance: LEVOTHYROXINE SODIUM
     Indication: THYROID DISORDER
     Dosage: 1 DF, QD
     Route: 048
  6. ASPIRIN. [Concomitant]
     Active Substance: ASPIRIN
     Indication: HYPERTENSION
     Dosage: 1 DF, QD (STARDED 10 YEARS AGO)
     Route: 048
  7. XARELTO [Concomitant]
     Active Substance: RIVAROXABAN
     Indication: ANTICOAGULANT THERAPY
     Dosage: 10 MG, QD (3 MONTHS AGO)
     Route: 048
  8. DIOVAN [Suspect]
     Active Substance: VALSARTAN
     Indication: CARDIAC DISORDER
     Dosage: UNK
     Route: 065
  9. AROMASIN [Concomitant]
     Active Substance: EXEMESTANE
     Indication: PRODUCT USED FOR UNKNOWN INDICATION
     Dosage: UNK
     Route: 065
  10. CO?DIOVAN [Suspect]
     Active Substance: HYDROCHLOROTHIAZIDE\VALSARTAN
     Indication: CARDIAC DISORDER
     Dosage: 1 DF (HYDROCHLOROTHIAZIDE 25 MG, VALSARTAN 160 MG), QD
     Route: 048
     Dates: start: 201001
  11. CO?DIOVAN [Suspect]
     Active Substance: HYDROCHLOROTHIAZIDE\VALSARTAN
     Indication: HYPERTENSION
     Dosage: 1 DF (HYDROCHLOROTHIAZIDE 25 MG, VALSARTAN 160 MG), QD
     Route: 048
  12. DIOVAN [Suspect]
     Active Substance: VALSARTAN
     Indication: HYPERTENSION
  13. PROPANOLOL [Concomitant]
     Active Substance: PROPRANOLOL HYDROCHLORIDE
     Dosage: 0.5 DF, QD (10 YEARS AGO)
     Route: 048

REACTIONS (19)
  - Nausea [Recovering/Resolving]
  - Stress [Unknown]
  - Infrequent bowel movements [Unknown]
  - Dehydration [Unknown]
  - Decreased immune responsiveness [Unknown]
  - Anaemia [Unknown]
  - Influenza [Unknown]
  - Renal pain [Unknown]
  - Hypokinesia [Not Recovered/Not Resolved]
  - Headache [Recovering/Resolving]
  - Renal failure [Recovering/Resolving]
  - Spinal disorder [Unknown]
  - Lacrimation increased [Unknown]
  - Feeling hot [Unknown]
  - Migraine [Recovered/Resolved]
  - Kidney infection [Unknown]
  - Deep vein thrombosis [Not Recovered/Not Resolved]
  - Cough [Unknown]
  - Body temperature increased [Recovered/Resolved]

NARRATIVE: CASE EVENT DATE: 20180208
